FAERS Safety Report 6516886-0 (Version None)
Quarter: 2009Q4

REPORT INFORMATION
  Report Type: 
  Country: None (occurrence: None)
  Receive Date: 20091223
  Receipt Date: 20091209
  Transmission Date: 20100525
  Serious: Yes (Other)
  Sender: FDA-Public Use
  Company Number: AU-PFIZER INC-2009302919

PATIENT
  Age: 59 Year

DRUGS (14)
  1. MARAVIROC [Suspect]
     Indication: HIV INFECTION
     Dosage: 150 MG, 2X/DAY
     Route: 048
     Dates: start: 20090218
  2. DIGOXIN [Concomitant]
     Dosage: UNK
     Dates: start: 20040101
  3. WARFARIN [Concomitant]
     Dosage: UNK
     Dates: start: 20040101
  4. POTASSIUM CHLORIDE [Concomitant]
     Dosage: UNK
  5. FRUSEMIDE [Concomitant]
     Dosage: UNK
  6. AVAPRO [Concomitant]
     Dosage: UNK
  7. PRAVASTATIN [Concomitant]
     Dosage: UNK
  8. SEREVENT [Concomitant]
     Dosage: UNK
  9. QVAR 40 [Concomitant]
     Dosage: UNK
     Dates: start: 20080501
  10. DARUNAVIR [Concomitant]
     Dosage: UNK
     Dates: start: 20090302
  11. RALTEGRAVIR [Concomitant]
     Dosage: UNK
     Dates: start: 20090302
  12. ETRAVIRINE [Concomitant]
     Dosage: UNK
     Dates: start: 20090302
  13. RITONAVIR [Concomitant]
     Dosage: UNK
     Dates: start: 19980101
  14. CITALOPRAM [Concomitant]
     Dosage: UNK

REACTIONS (1)
  - VENTRICULAR TACHYCARDIA [None]
